FAERS Safety Report 13151436 (Version 1)
Quarter: 2017Q1

REPORT INFORMATION
  Report Type: Spontaneous
  Country: US (occurrence: US)
  Receive Date: 20170125
  Receipt Date: 20170125
  Transmission Date: 20170428
  Serious: No
  Sender: FDA-Public Use
  Company Number: US-KADMON PHARMACEUTICALS, LLC-KAD201611-003958

PATIENT
  Age: 61 Year
  Sex: Male

DRUGS (4)
  1. RIBASPHERE [Suspect]
     Active Substance: RIBAVIRIN
     Indication: HEPATITIS C
     Dosage: 3 TABLETS FOUR TIMES DAILY; 2400 MG DAILY
     Route: 048
     Dates: start: 20160724, end: 20160830
  2. SOVALDI [Suspect]
     Active Substance: SOFOSBUVIR
     Indication: HEPATITIS C
     Dates: end: 20161015
  3. RIBASPHERE [Suspect]
     Active Substance: RIBAVIRIN
     Route: 048
     Dates: start: 20160909, end: 20160915
  4. RIBASPHERE [Suspect]
     Active Substance: RIBAVIRIN
     Route: 048
     Dates: start: 20160906

REACTIONS (4)
  - Malaise [Recovered/Resolved]
  - Haemoglobin decreased [Recovering/Resolving]
  - Mental impairment [Unknown]
  - Overdose [Unknown]

NARRATIVE: CASE EVENT DATE: 20160724
